FAERS Safety Report 6992409-7 (Version None)
Quarter: 2010Q3

REPORT INFORMATION
  Report Type: 
  Country: None (occurrence: None)
  Receive Date: 20100915
  Receipt Date: 20100903
  Transmission Date: 20110219
  Serious: Yes (Other)
  Sender: FDA-Public Use
  Company Number: 688624

PATIENT
  Age: 79 Year
  Sex: Female
  Weight: 51.5 kg

DRUGS (5)
  1. CARBOPLATIN [Suspect]
     Indication: OVARIAN CANCER
     Dosage: 257MG , EVERY THREE WEEKS, INTRAVENOUS; 240ML, EVERY THREE WEEKS, INTRAVENOUS
     Route: 042
     Dates: start: 20090416, end: 20090730
  2. CARBOPLATIN [Suspect]
     Indication: OVARIAN CANCER
     Dosage: 257MG , EVERY THREE WEEKS, INTRAVENOUS; 240ML, EVERY THREE WEEKS, INTRAVENOUS
     Route: 042
     Dates: start: 20100629, end: 20100902
  3. BENADRYL [Concomitant]
  4. ZOFRAN [Concomitant]
  5. DECADRON [Concomitant]

REACTIONS (3)
  - FLUSHING [None]
  - OXYGEN SATURATION DECREASED [None]
  - RASH ERYTHEMATOUS [None]
